FAERS Safety Report 4738528-7 (Version None)
Quarter: 2005Q3

REPORT INFORMATION
  Report Type: 
  Country: None (occurrence: None)
  Receive Date: 20050803
  Receipt Date: 20050714
  Transmission Date: 20060218
  Serious: Yes (Disabling)
  Sender: FDA-Public Use
  Company Number: EWC041241790

PATIENT
  Age: 53 Year
  Sex: Male
  Weight: 70 kg

DRUGS (5)
  1. SOMATROPIN [Suspect]
     Indication: GROWTH HORMONE DEFICIENCY
     Dosage: 0.4 MG DAY
     Dates: start: 19991018, end: 20041206
  2. SOMATROPIN [Suspect]
     Indication: POST PROCEDURAL COMPLICATION
     Dosage: 0.4 MG DAY
     Dates: start: 19991018, end: 20041206
  3. CORTISONE ACETATE [Concomitant]
  4. L-THYROXINE [Concomitant]
  5. TESTOSTERONE ENANTATE [Concomitant]

REACTIONS (5)
  - BRAIN COMPRESSION [None]
  - BRAIN MASS [None]
  - DISEASE RECURRENCE [None]
  - RATHKE'S CLEFT CYST [None]
  - VISUAL PATHWAY DISORDER [None]
